FAERS Safety Report 13575738 (Version 1)
Quarter: 2017Q2

REPORT INFORMATION
  Report Type: Spontaneous
  Country: US (occurrence: US)
  Receive Date: 20170524
  Receipt Date: 20170524
  Transmission Date: 20170830
  Serious: No
  Sender: FDA-Public Use
  Company Number: US-ACCORD-049731

PATIENT
  Age: 68 Year
  Sex: Female
  Weight: 76.36 kg

DRUGS (1)
  1. QUETIAPINE FUMARATE ACCORD [Suspect]
     Active Substance: QUETIAPINE FUMARATE
     Indication: ANXIETY
     Dosage: ONCE A DAY
     Route: 048
     Dates: start: 201403

REACTIONS (2)
  - Erythema [Unknown]
  - Rash pruritic [Unknown]
